FAERS Safety Report 9312872 (Version 2)
Quarter: 2013Q2

REPORT INFORMATION
  Report Type: Spontaneous
  Country: US (occurrence: US)
  Receive Date: 20130528
  Receipt Date: 20130617
  Transmission Date: 20140414
  Serious: Yes (Other)
  Sender: FDA-Public Use
  Company Number: US-GILEAD-2013-0075694

PATIENT
  Sex: Female

DRUGS (3)
  1. LETAIRIS [Suspect]
     Indication: PULMONARY ARTERIAL HYPERTENSION
     Dosage: 5 MG, QD
     Route: 048
     Dates: start: 20111101
  2. LETAIRIS [Suspect]
     Indication: HEREDITARY HAEMORRHAGIC TELANGIECTASIA
  3. LETAIRIS [Suspect]
     Indication: ARTERIOVENOUS MALFORMATION

REACTIONS (3)
  - Pulmonary arterial hypertension [Unknown]
  - Dyspnoea [Unknown]
  - Hypersensitivity [Unknown]
